FAERS Safety Report 11484998 (Version 1)
Quarter: 2015Q3

REPORT INFORMATION
  Report Type: Spontaneous
  Country: US (occurrence: US)
  Receive Date: 20150909
  Receipt Date: 20150909
  Transmission Date: 20151125
  Serious: No
  Sender: FDA-Public Use
  Company Number: US-JAZZ-2015-US-001135

PATIENT
  Sex: Female
  Weight: 110.2 kg

DRUGS (4)
  1. XYREM [Suspect]
     Active Substance: SODIUM OXYBATE
     Dosage: DOSE ADJUSTMENTS
     Route: 048
  2. XYREM [Suspect]
     Active Substance: SODIUM OXYBATE
     Dosage: 4.5 G, BID
     Route: 048
     Dates: start: 201412
  3. XYREM [Suspect]
     Active Substance: SODIUM OXYBATE
     Indication: FIBROMYALGIA
     Dosage: 3 G, BID
     Route: 048
     Dates: start: 200502, end: 200504
  4. XYREM [Suspect]
     Active Substance: SODIUM OXYBATE
     Dosage: 7 G, BID
     Route: 048
     Dates: start: 200802, end: 2013

REACTIONS (2)
  - Product use issue [Unknown]
  - Meniscus injury [Unknown]
